FAERS Safety Report 8369784-4 (Version None)
Quarter: 2012Q1

REPORT INFORMATION
  Report Type: 
  Country: None (occurrence: None)
  Receive Date: 20120323
  Receipt Date: 20111128
  Transmission Date: 20120608
  Serious: Yes (Hospitalization)
  Sender: FDA-Public Use
  Company Number: 163-21880-11113931

PATIENT
  Age: 73 Year
  Sex: Female

DRUGS (5)
  1. ASPIRIN [Concomitant]
  2. ZANTAC [Concomitant]
  3. ZOMETA [Concomitant]
  4. REVLIMID [Suspect]
     Indication: MULTIPLE MYELOMA
     Dosage: 25 MG, 1 IN 1 D, PO 10 MG, DAILY X 21 DAYS, PO
     Route: 048
     Dates: start: 20110921
  5. REVLIMID [Suspect]
     Indication: MULTIPLE MYELOMA
     Dosage: 25 MG, 1 IN 1 D, PO 10 MG, DAILY X 21 DAYS, PO
     Route: 048
     Dates: start: 20081101

REACTIONS (1)
  - CONFUSIONAL STATE [None]
